FAERS Safety Report 7264931-X (Version None)
Quarter: 2011Q1

REPORT INFORMATION
  Report Type: 
  Country: None (occurrence: None)
  Receive Date: 20110131
  Receipt Date: 20101123
  Transmission Date: 20110831
  Serious: Yes (Hospitalization, Other)
  Sender: FDA-Public Use
  Company Number: US-BAYER-201038110NA

PATIENT
  Sex: Female
  Weight: 80 kg

DRUGS (4)
  1. YASMIN [Suspect]
     Indication: ACNE
     Dosage: UNK
     Dates: start: 20040914, end: 20041125
  2. YAZ [Suspect]
     Indication: ACNE
  3. OCELLA [Suspect]
     Indication: ACNE
  4. YASMIN [Suspect]
     Indication: CONTRACEPTION

REACTIONS (15)
  - PULMONARY EMBOLISM [None]
  - MUSCLE SPASMS [None]
  - CHILLS [None]
  - BLOOD PRESSURE INCREASED [None]
  - TACHYCARDIA [None]
  - ASTHENIA [None]
  - HEADACHE [None]
  - FLANK PAIN [None]
  - CHEST PAIN [None]
  - DIZZINESS [None]
  - PARAESTHESIA [None]
  - NIGHT SWEATS [None]
  - HYPOAESTHESIA FACIAL [None]
  - DYSPNOEA [None]
  - REFLUX GASTRITIS [None]
